FAERS Safety Report 4514343-4 (Version None)
Quarter: 2004Q4

REPORT INFORMATION
  Report Type: 
  Country: None (occurrence: None)
  Receive Date: 20041130
  Receipt Date: 20041011
  Transmission Date: 20050328
  Serious: No
  Sender: FDA-Public Use
  Company Number: US-MERCK-0410USA01684

PATIENT
  Age: 65 Year
  Sex: Male

DRUGS (7)
  1. ZETIA [Suspect]
     Indication: BLOOD CHOLESTEROL INCREASED
     Route: 048
     Dates: start: 20040915, end: 20041001
  2. COUMADIN [Concomitant]
     Route: 048
  3. COUMADIN [Concomitant]
     Route: 048
  4. ZOCOR [Concomitant]
     Indication: BLOOD CHOLESTEROL INCREASED
     Route: 048
     Dates: start: 20040701
  5. PRINIVIL [Concomitant]
     Indication: HYPERTENSION
     Route: 048
  6. ALLOPURINOL [Concomitant]
     Route: 048
  7. CELEBREX [Concomitant]
     Route: 065

REACTIONS (2)
  - HAEMATOMA [None]
  - INTERNATIONAL NORMALISED RATIO INCREASED [None]
